FAERS Safety Report 9620987 (Version 5)
Quarter: 2014Q2

REPORT INFORMATION
  Report Type: Report from Study
  Country: IL (occurrence: IL)
  Receive Date: 20131015
  Receipt Date: 20140418
  Transmission Date: 20141212
  Serious: Yes (Hospitalization, Other)
  Sender: FDA-Public Use
  Company Number: PHHY2013IL011966

PATIENT
  Age: 66 Year
  Sex: Male

DRUGS (4)
  1. SANDOSTATIN LAR [Suspect]
     Indication: CARCINOID TUMOUR
     Dosage: 20 MG, ONCE EVERY 4 WEEKS
     Route: 030
     Dates: start: 20060620, end: 20130204
  2. SANDOSTATIN LAR [Suspect]
     Dosage: 30 MG, ONCE EVERY 4 WEEKS
     Route: 030
     Dates: start: 20130204, end: 20130627
  3. SANDOSTATIN LAR [Suspect]
     Dosage: 30 MG, ONCE EVERY 4 WEEKS
     Route: 030
     Dates: start: 20130916
  4. AFINITOR [Suspect]
     Dosage: 10 MG, UNK

REACTIONS (14)
  - Neuroendocrine tumour [Not Recovered/Not Resolved]
  - Malignant neoplasm progression [Not Recovered/Not Resolved]
  - Renal failure [Not Recovered/Not Resolved]
  - Syncope [Unknown]
  - Gastrointestinal neoplasm [Unknown]
  - Pancreatic neoplasm [Unknown]
  - Second primary malignancy [Unknown]
  - Urinary tract obstruction [Unknown]
  - Metastases to liver [Unknown]
  - Temperature intolerance [Unknown]
  - Lymphadenopathy [Unknown]
  - Diarrhoea [Recovered/Resolved]
  - Flushing [Unknown]
  - Asthenia [Not Recovered/Not Resolved]
